FAERS Safety Report 9905963 (Version 1)
Quarter: 2013Q2

REPORT INFORMATION
  Report Type: Spontaneous
  Country: US (occurrence: None)
  Receive Date: 20130305
  Receipt Date: 20130305
  Transmission Date: 20140414
  Serious: Yes (Hospitalization)
  Sender: FDA-Public Use
  Company Number: 163-21880-12041819

PATIENT
  Sex: 0

DRUGS (1)
  1. REVLIMID (LENALIDOMIDE) (5 MILLIGRAM, CAPSULES) [Suspect]
     Indication: PLASMA CELL MYELOMA
     Dosage: 5 MG, DAILY X 21 DAYS, PO
     Route: 048
     Dates: start: 20111129, end: 20120410

REACTIONS (1)
  - Localised infection [None]
